FAERS Safety Report 5745399-9 (Version None)
Quarter: 2008Q2

REPORT INFORMATION
  Report Type: 
  Country: None (occurrence: None)
  Receive Date: 20080521
  Receipt Date: 20080514
  Transmission Date: 20081010
  Serious: Yes (Hospitalization, Other)
  Sender: FDA-Public Use
  Company Number: AU-NOVOPROD-274024

PATIENT
  Age: 12 Year
  Sex: Female
  Weight: 37 kg

DRUGS (3)
  1. NORDITROPIN NORDIFLEX [Suspect]
     Indication: TURNER'S SYNDROME
     Dosage: 2.16 MG, QD
     Route: 058
     Dates: start: 20080110, end: 20080319
  2. LEVOTHYROXINE SODIUM [Concomitant]
     Indication: HYPOTHYROIDISM
     Dosage: 50 UG, UNK
     Route: 048
     Dates: start: 20071211, end: 20080327
  3. LEVOTHYROXINE SODIUM [Concomitant]
     Dates: start: 20080403

REACTIONS (2)
  - DIABETIC KETOACIDOSIS [None]
  - TYPE 1 DIABETES MELLITUS [None]
